FAERS Safety Report 7923234-8 (Version None)
Quarter: 2011Q4

REPORT INFORMATION
  Report Type: 
  Country: None (occurrence: None)
  Receive Date: 20111117
  Receipt Date: 20110131
  Transmission Date: 20120403
  Serious: No
  Sender: FDA-Public Use
  Company Number: US-AMGEN-USASP2011005968

PATIENT
  Age: 63 Year
  Sex: Female

DRUGS (1)
  1. ENBREL [Suspect]
     Indication: PSORIASIS
     Dosage: 50 MG, QWK
     Dates: start: 20080207

REACTIONS (5)
  - SINUS CONGESTION [None]
  - PHARYNGITIS STREPTOCOCCAL [None]
  - EAR DISORDER [None]
  - COUGH [None]
  - OROPHARYNGEAL PAIN [None]
